FAERS Safety Report 10723384 (Version 4)
Quarter: 2017Q1

REPORT INFORMATION
  Report Type: Spontaneous
  Country: CA (occurrence: CA)
  Receive Date: 20150120
  Receipt Date: 20170331
  Transmission Date: 20170428
  Serious: Yes (Hospitalization, Other)
  Sender: FDA-Public Use
  Company Number: CA-MERCK-1501CAN006463

PATIENT
  Age: 42 Year
  Sex: Female

DRUGS (1)
  1. SINGULAIR [Suspect]
     Active Substance: MONTELUKAST SODIUM
     Indication: ASTHMA
     Dosage: 10 MG, QD (ONE 10 MG TABLET, PER DAY)
     Route: 048
     Dates: start: 200911

REACTIONS (5)
  - Fibromyalgia [Recovered/Resolved]
  - Osteoarthritis [Recovered/Resolved]
  - Mobility decreased [Not Recovered/Not Resolved]
  - Renal cyst [Recovering/Resolving]
  - Migraine [Recovered/Resolved]

NARRATIVE: CASE EVENT DATE: 20141208
